FAERS Safety Report 6879655-8 (Version None)
Quarter: 2010Q3

REPORT INFORMATION
  Report Type: 
  Country: None (occurrence: None)
  Receive Date: 20100728
  Receipt Date: 20100401
  Transmission Date: 20110219
  Serious: No
  Sender: FDA-Public Use
  Company Number: US-MYLANLABS-2010S1003588

PATIENT
  Age: 72 Year
  Sex: Female
  Weight: 86.18 kg

DRUGS (10)
  1. CLONIDINE HYDROCHLORIDE [Suspect]
     Indication: BLOOD PRESSURE INCREASED
     Route: 048
     Dates: start: 20091030, end: 20091129
  2. CLONIDINE HYDROCHLORIDE [Suspect]
     Indication: RENAL CYST
     Route: 048
     Dates: start: 20091030, end: 20091129
  3. CLONIDINE HYDROCHLORIDE [Suspect]
     Route: 048
     Dates: start: 20091130
  4. CLONIDINE HYDROCHLORIDE [Suspect]
     Route: 048
     Dates: start: 20091130
  5. GLYBURIDE [Suspect]
     Indication: DIABETES MELLITUS
     Route: 048
  6. ASPIRIN [Concomitant]
     Indication: CARDIAC DISORDER
     Route: 048
     Dates: start: 19800101
  7. PLAVIX [Concomitant]
     Indication: CARDIAC DISORDER
     Route: 048
     Dates: start: 20030101
  8. ATENOLOL [Concomitant]
     Indication: BLOOD PRESSURE INCREASED
     Route: 048
  9. DIOVAN [Concomitant]
     Indication: BLOOD PRESSURE INCREASED
     Route: 048
  10. LIPITOR [Concomitant]

REACTIONS (3)
  - CONSTIPATION [None]
  - DIZZINESS [None]
  - PHOTOPHOBIA [None]
